FAERS Safety Report 5444188-2 (Version None)
Quarter: 2007Q3

REPORT INFORMATION
  Report Type: 
  Country: None (occurrence: None)
  Receive Date: 20070906
  Receipt Date: 20070828
  Transmission Date: 20080115
  Serious: Yes (Death, Hospitalization)
  Sender: FDA-Public Use
  Company Number: FRWYE226628AUG07

PATIENT
  Sex: Male

DRUGS (17)
  1. TAZOCILLINE [Suspect]
     Indication: SEPTIC SHOCK
     Dosage: 16 G TOTAL DAILY
     Route: 042
     Dates: start: 20070714, end: 20070717
  2. TAZOCILLINE [Suspect]
     Indication: LEGIONELLA INFECTION
  3. TAVANIC [Suspect]
     Route: 042
     Dates: start: 20070714, end: 20070721
  4. LOVENOX [Concomitant]
     Dosage: UNKNOWN
     Dates: start: 20070615, end: 20070714
  5. MOPRAL [Concomitant]
     Dosage: UNKNOWN
     Dates: start: 20070704
  6. PERFALGAN [Concomitant]
     Dosage: UNKNOWN
     Dates: start: 20070704
  7. MORPHINE [Concomitant]
     Dosage: UNKNOWN
     Dates: start: 20070704
  8. HYDROCORTISONE [Concomitant]
     Dosage: UNKNOWN
     Dates: start: 20070704
  9. SUFENTA [Concomitant]
     Dosage: UNKNOWN
     Dates: start: 20070714, end: 20070717
  10. DIPRIVAN [Concomitant]
     Dosage: UNKNOWN
     Dates: start: 20070714, end: 20070717
  11. NOREPINEPHRINE [Concomitant]
     Dosage: UNKNOWN
     Dates: start: 20070701, end: 20070719
  12. FLAGYL [Concomitant]
     Dosage: UNKNOWN
     Dates: start: 20070715, end: 20070715
  13. FLAGYL [Concomitant]
     Dosage: UNKNOWN
     Dates: start: 20070718, end: 20070723
  14. HEPARIN CALCIUM [Concomitant]
     Dosage: UNKNOWN
     Dates: start: 20070715, end: 20070717
  15. ZYVOX [Concomitant]
     Dosage: UNKNOWN
     Dates: start: 20070616, end: 20070717
  16. ORGARAN [Concomitant]
     Dosage: UNKNOWN
     Dates: start: 20070719
  17. TRIFLUCAN [Suspect]
     Dosage: UNKNOWN
     Dates: start: 20070714, end: 20070721

REACTIONS (5)
  - CARDIO-RESPIRATORY ARREST [None]
  - DEEP VEIN THROMBOSIS [None]
  - PERITONITIS [None]
  - SEPTIC SHOCK [None]
  - THROMBOCYTOPENIA [None]
